FAERS Safety Report 5346854-6 (Version None)
Quarter: 2007Q2

REPORT INFORMATION
  Report Type: 
  Country: None (occurrence: None)
  Receive Date: 20070604
  Receipt Date: 20070525
  Transmission Date: 20071010
  Serious: Yes (Other)
  Sender: FDA-Public Use
  Company Number: OSCN-NO-0705L-0244

PATIENT
  Age: 49 Year
  Sex: Female

DRUGS (2)
  1. OMNISCAN [Suspect]
     Indication: DRUG USE FOR UNKNOWN INDICATION
     Dosage: NR, SINGLE DOSE, UNK
  2. MESALAZINE [Concomitant]

REACTIONS (5)
  - DISEASE PROGRESSION [None]
  - FOCAL GLOMERULOSCLEROSIS [None]
  - HAEMODIALYSIS [None]
  - NEPHRITIC SYNDROME [None]
  - SKIN INDURATION [None]
